FAERS Safety Report 9097034 (Version 1)
Quarter: 2013Q1

REPORT INFORMATION
  Report Type: Spontaneous
  Country: DE (occurrence: None)
  Receive Date: 20130125
  Receipt Date: 20130125
  Transmission Date: 20140127
  Serious: Yes (Death)
  Sender: FDA-Public Use
  Company Number: FK201300123

PATIENT
  Sex: Female

DRUGS (4)
  1. METHYLPREDNISOLONE [Suspect]
     Indication: MULTIPLE SCLEROSIS
     Route: 042
     Dates: start: 200412
  2. AZATHIOPRINE [Suspect]
     Indication: MULTIPLE SCLEROSIS
     Dates: start: 200412, end: 2005
  3. NATALIZUMAB [Suspect]
     Indication: MULTIPLE SCLEROSIS
     Dosage: 1 IN 4 WK
     Dates: start: 200804, end: 200806
  4. INTERFERON BETA 1A [Concomitant]

REACTIONS (7)
  - Central nervous system lymphoma [None]
  - Fatigue [None]
  - Personality change [None]
  - Cognitive disorder [None]
  - Gait disturbance [None]
  - Ataxia [None]
  - Monoparesis [None]
